FAERS Safety Report 16615823 (Version 1)
Quarter: 2019Q3

REPORT INFORMATION
  Report Type: Spontaneous
  Country: US (occurrence: US)
  Receive Date: 20190723
  Receipt Date: 20190723
  Transmission Date: 20191004
  Serious: No
  Sender: FDA-Public Use
  Company Number: US-ABBVIE-19P-163-2786354-00

PATIENT
  Sex: Female

DRUGS (1)
  1. ORILISSA [Suspect]
     Active Substance: ELAGOLIX SODIUM
     Indication: ENDOMETRIOSIS
     Route: 048

REACTIONS (8)
  - Mood altered [Recovered/Resolved]
  - Pruritus [Recovered/Resolved]
  - Anger [Recovered/Resolved]
  - Feeling abnormal [Recovered/Resolved]
  - Pruritus generalised [Recovered/Resolved]
  - Irritability [Recovered/Resolved]
  - Frustration tolerance decreased [Recovered/Resolved]
  - Drug ineffective [Not Recovered/Not Resolved]
